FAERS Safety Report 24995949 (Version 1)
Quarter: 2025Q1

REPORT INFORMATION
  Report Type: Spontaneous
  Country: US (occurrence: US)
  Receive Date: 20250221
  Receipt Date: 20250221
  Transmission Date: 20250408
  Serious: Yes (Hospitalization, Other)
  Sender: CATALYST PHARMA
  Company Number: US-CATALYST PHARMACEUTICALS-US-CATA-24-01315

PATIENT
  Age: 10 Year
  Sex: Male
  Weight: 39.819 kg

DRUGS (10)
  1. AGAMREE [Suspect]
     Active Substance: VAMOROLONE
     Indication: Duchenne muscular dystrophy
     Dosage: 4.9 ML ONCE A DAY
     Route: 048
     Dates: start: 20240226, end: 20241111
  2. AGAMREE [Suspect]
     Active Substance: VAMOROLONE
     Dosage: 4.9 ML ONCE A DAY
     Route: 048
     Dates: start: 20241115
  3. ADDERALL EXTENDED RELEASE [Concomitant]
     Indication: Mental disorder
     Dosage: 10 MG ONCE A DAY
     Route: 065
  4. KIDS MULTI GUMMIES [Concomitant]
     Indication: Hypovitaminosis
     Dosage: ONCE A DAY
     Route: 065
  5. VITAMIN D3 [Concomitant]
     Active Substance: CHOLECALCIFEROL
     Indication: Hypovitaminosis
     Dosage: 2000 UNITS ONCE A DAY
     Route: 065
  6. TACROLIMUS [Concomitant]
     Active Substance: TACROLIMUS
     Indication: Psoriasis
     Dosage: ONCE A DAY
     Route: 065
  7. CLARITIN [Concomitant]
     Active Substance: LORATADINE
     Indication: Hypersensitivity
     Dosage: 5 MG ONCE A DAY
     Route: 065
  8. ZORYVE [Concomitant]
     Active Substance: ROFLUMILAST
     Indication: Psoriasis
     Dosage: ONCE A DAY
     Route: 065
  9. CLOBETASOL [Concomitant]
     Active Substance: CLOBETASOL
     Indication: Psoriasis
     Route: 061
  10. LISINOPRIL [Concomitant]
     Active Substance: LISINOPRIL
     Indication: Cardiovascular disorder
     Dosage: 5 MG ONCE A DAY
     Route: 065

REACTIONS (5)
  - Pneumonia [Recovering/Resolving]
  - Dizziness [Unknown]
  - Bladder disorder [Not Recovered/Not Resolved]
  - Urinary incontinence [Not Recovered/Not Resolved]
  - Somnolence [Not Recovered/Not Resolved]

NARRATIVE: CASE EVENT DATE: 20241107
